FAERS Safety Report 4364323-7 (Version None)
Quarter: 2004Q2

REPORT INFORMATION
  Report Type: 
  Country: None (occurrence: None)
  Receive Date: 20040525
  Receipt Date: 20030716
  Transmission Date: 20050107
  Serious: No
  Sender: FDA-Public Use
  Company Number: US-BRISTOL-MYERS SQUIBB COMPANY-12328936

PATIENT
  Sex: Female

DRUGS (1)
  1. CYTOXAN [Suspect]
     Indication: ACUTE MYELOID LEUKAEMIA
     Route: 042
     Dates: start: 20030714, end: 20030714

REACTIONS (6)
  - CHILLS [None]
  - NASAL CONGESTION [None]
  - NAUSEA [None]
  - ORAL DISCOMFORT [None]
  - PARAESTHESIA [None]
  - SINUS HEADACHE [None]
